FAERS Safety Report 9262469 (Version 1)
Quarter: 2013Q2

REPORT INFORMATION
  Report Type: Spontaneous
  Country: GB (occurrence: None)
  Receive Date: 20130425
  Receipt Date: 20130425
  Transmission Date: 20140414
  Serious: Yes (Disabling)
  Sender: FDA-Public Use
  Company Number: ACO_35040_2013

PATIENT
  Sex: Male

DRUGS (1)
  1. FAMPYRA (DALFAMPRIDINE) TABLET, 10MG [Suspect]
     Indication: PRODUCT USED FOR UNKNOWN INDICATION
     Dates: end: 20130223

REACTIONS (5)
  - Abasia [None]
  - Feeling abnormal [None]
  - Gait disturbance [None]
  - Depressed mood [None]
  - Sensation of heaviness [None]
